FAERS Safety Report 8832748 (Version 1)
Quarter: 2012Q4

REPORT INFORMATION
  Report Type: 
  Country: TW (occurrence: TW)
  Receive Date: 20121010
  Receipt Date: 20121010
  Transmission Date: 20130627
  Serious: No
  Sender: FDA-Public Use
  Company Number: TW-JNJFOC-20120912405

PATIENT
  Sex: Female

DRUGS (1)
  1. DUROGESIC D-TRANS [Suspect]
     Indication: CANCER PAIN
     Route: 062
     Dates: start: 201208

REACTIONS (2)
  - Wrong technique in drug usage process [Recovered/Resolved]
  - Wrong technique in drug usage process [Unknown]
